FAERS Safety Report 6753378-8 (Version None)
Quarter: 2010Q2

REPORT INFORMATION
  Report Type: 
  Country: None (occurrence: None)
  Receive Date: 20100520
  Receipt Date: 20091109
  Transmission Date: 20101027
  Serious: Yes (Other)
  Sender: FDA-Public Use
  Company Number: 2009296097

PATIENT
  Age: 63 Year
  Sex: Female

DRUGS (7)
  1. PROVERA [Suspect]
     Indication: HORMONE REPLACEMENT THERAPY
     Dosage: 10 MG, ORAL
     Route: 048
     Dates: start: 19820101, end: 19910201
  2. PREMARIN [Suspect]
     Indication: HORMONE REPLACEMENT THERAPY
     Dosage: 0.625 MG
     Dates: start: 19820101, end: 20030701
  3. THEOPHYLLINE [Concomitant]
  4. SERTRALINE [Concomitant]
  5. ASPIRIN [Concomitant]
  6. XANAX [Concomitant]
  7. CALCIUM (CALCIUM) [Concomitant]

REACTIONS (1)
  - BREAST CANCER FEMALE [None]
